FAERS Safety Report 21446796 (Version 1)
Quarter: 2022Q4

REPORT INFORMATION
  Report Type: Spontaneous
  Country: US (occurrence: None)
  Receive Date: 20221011
  Receipt Date: 20221011
  Transmission Date: 20230113
  Serious: Yes (Death)
  Sender: FDA-Public Use
  Company Number: None

PATIENT
  Age: 73 Year
  Sex: Female
  Weight: 61.23 kg

DRUGS (19)
  1. XGEVA [Suspect]
     Active Substance: DENOSUMAB
     Indication: Breast cancer female
     Dosage: OTHER FREQUENCY : Q28DAYS;?
     Route: 058
  2. ALLOPURINOL [Concomitant]
     Active Substance: ALLOPURINOL
  3. ANASTROZOLE [Concomitant]
     Active Substance: ANASTROZOLE
  4. CHLORPROMAZINE [Concomitant]
     Active Substance: CHLORPROMAZINE
  5. DULCOLAX NOS [Concomitant]
     Active Substance: BISACODYL OR DOCUSATE SODIUM
  6. ELQUIS [Concomitant]
  7. ENULOSE [Concomitant]
     Active Substance: LACTULOSE
  8. FENOFIBRATE [Concomitant]
     Active Substance: FENOFIBRATE
  9. FERROUS SULFATE [Concomitant]
     Active Substance: FERROUS SULFATE
  10. FULVESTRANT [Concomitant]
     Active Substance: FULVESTRANT
  11. LACTULOSE [Concomitant]
     Active Substance: LACTULOSE
  12. LEVOTHYROXINE [Concomitant]
     Active Substance: LEVOTHYROXINE
  13. OLANZAPINE [Concomitant]
     Active Substance: OLANZAPINE
  14. QUETIAPINE [Concomitant]
     Active Substance: QUETIAPINE
  15. RISPERIDONE [Concomitant]
     Active Substance: RISPERIDONE
  16. SENNA [Concomitant]
     Active Substance: SENNA LEAF\SENNOSIDES\SENNOSIDES A AND B
  17. SERTRALINE [Concomitant]
     Active Substance: SERTRALINE HYDROCHLORIDE
  18. TRAMADOL [Concomitant]
     Active Substance: TRAMADOL
  19. TYLENOL [Concomitant]
     Active Substance: ACETAMINOPHEN

REACTIONS (1)
  - Death [None]
